FAERS Safety Report 14133689 (Version 1)
Quarter: 2017Q4

REPORT INFORMATION
  Report Type: Other
  Country: GB (occurrence: GB)
  Receive Date: 20171027
  Receipt Date: 20171027
  Transmission Date: 20180321
  Serious: Yes (Hospitalization, Other)
  Sender: FDA-Public Use
  Company Number: GB-VELOXIS PHARMACEUTICALS-2031670

PATIENT
  Age: 50 Year
  Sex: Male

DRUGS (2)
  1. ENVARSUS XR [Suspect]
     Active Substance: TACROLIMUS
     Indication: RENAL TRANSPLANT
  2. PREDNISOLONE. [Suspect]
     Active Substance: PREDNISOLONE

REACTIONS (5)
  - Intentional product misuse [Unknown]
  - Complications of transplanted kidney [Unknown]
  - Osteomyelitis [Unknown]
  - Urinary tract infection [Unknown]
  - Cytomegalovirus infection [Unknown]
